FAERS Safety Report 6356831-4 (Version None)
Quarter: 2009Q3

REPORT INFORMATION
  Report Type: 
  Country: None (occurrence: None)
  Receive Date: 20090910
  Receipt Date: 20090910
  Transmission Date: 20100115
  Serious: No
  Sender: FDA-Public Use
  Company Number: None

PATIENT
  Sex: Female
  Weight: 83.0083 kg

DRUGS (3)
  1. CHANTIX [Suspect]
     Indication: SMOKING CESSATION THERAPY
     Dosage: VARIED VARIED PO
     Route: 048
     Dates: start: 20070625, end: 20070705
  2. ESTRADERM [Concomitant]
  3. CLARINEX [Concomitant]

REACTIONS (14)
  - ABDOMINAL DISTENSION [None]
  - ANGIOEDEMA [None]
  - CHEST DISCOMFORT [None]
  - DYSPNOEA [None]
  - FLUSHING [None]
  - GOITRE [None]
  - HYPERTENSION [None]
  - LARYNGEAL OEDEMA [None]
  - MASTOCYTOSIS [None]
  - MUSCULAR WEAKNESS [None]
  - PAIN IN EXTREMITY [None]
  - PALPITATIONS [None]
  - WEIGHT INCREASED [None]
  - WHEEZING [None]
